FAERS Safety Report 4442191-2 (Version None)
Quarter: 2004Q3

REPORT INFORMATION
  Report Type: 
  Country: None (occurrence: None)
  Receive Date: 20040903
  Receipt Date: 20040727
  Transmission Date: 20050211
  Serious: Yes (Other)
  Sender: FDA-Public Use
  Company Number: 2004UW15783

PATIENT
  Age: 64 Year
  Sex: Female
  Weight: 48.0813 kg

DRUGS (2)
  1. CRESTOR [Suspect]
     Indication: BLOOD CHOLESTEROL INCREASED
     Dosage: 10 MG DAILY PO
     Route: 048
     Dates: start: 20040428, end: 20040611
  2. SYNTHROID [Concomitant]

REACTIONS (2)
  - LIVER DISORDER [None]
  - MYALGIA [None]
